FAERS Safety Report 9871620 (Version 1)
Quarter: 2014Q1

REPORT INFORMATION
  Report Type: Spontaneous
  Country: GB (occurrence: GB)
  Receive Date: 20140205
  Receipt Date: 20140205
  Transmission Date: 20141002
  Serious: Yes (Hospitalization)
  Sender: FDA-Public Use
  Company Number: GB-ACTAVISPR-2013-24840

PATIENT
  Age: 71 Year
  Sex: Female

DRUGS (2)
  1. PREDNISOLONE [Suspect]
     Indication: SYSTEMIC LUPUS ERYTHEMATOSUS
     Dosage: 8 MG, DAILY
     Route: 048
     Dates: start: 1994
  2. LEVOTHYROXIN [Concomitant]
     Indication: PRODUCT USED FOR UNKNOWN INDICATION
     Dosage: 100 MCG DAILY
     Route: 065

REACTIONS (12)
  - Pain [Unknown]
  - Headache [Unknown]
  - Eye pain [Unknown]
  - Malaise [Unknown]
  - Joint warmth [Unknown]
  - Arthralgia [Unknown]
  - Feeling hot [Unknown]
  - Nausea [Unknown]
  - Tongue discolouration [Unknown]
  - Pharyngeal erythema [Unknown]
  - Erythema [Unknown]
  - Chills [Unknown]
